FAERS Safety Report 6158100-4 (Version None)
Quarter: 2009Q2

REPORT INFORMATION
  Report Type: 
  Country: None (occurrence: None)
  Receive Date: 20090417
  Receipt Date: 20090413
  Transmission Date: 20091009
  Serious: Yes (Other)
  Sender: FDA-Public Use
  Company Number: PHEH2006US02744

PATIENT
  Sex: Male
  Weight: 83.9 kg

DRUGS (6)
  1. AREDIA [Suspect]
     Indication: MULTIPLE MYELOMA
  2. ZOMETA [Suspect]
  3. PAXIL [Concomitant]
  4. ARANESP [Concomitant]
  5. DECADRON                                /CAN/ [Concomitant]
  6. RADIATION [Concomitant]

REACTIONS (21)
  - BONE DISORDER [None]
  - CANDIDIASIS [None]
  - DEFORMITY [None]
  - DENTAL CARIES [None]
  - EMOTIONAL DISTRESS [None]
  - ENDODONTIC PROCEDURE [None]
  - HYPOPHAGIA [None]
  - INCISIONAL DRAINAGE [None]
  - LIFE EXPECTANCY SHORTENED [None]
  - LOCAL SWELLING [None]
  - OESOPHAGITIS [None]
  - ORAL INFECTION [None]
  - OSTEOARTHRITIS [None]
  - OSTEONECROSIS [None]
  - OSTEOPENIA [None]
  - PAIN [None]
  - PRIMARY SEQUESTRUM [None]
  - PURULENT DISCHARGE [None]
  - TOOTH DISORDER [None]
  - TOOTH EXTRACTION [None]
  - TOOTH REPAIR [None]
